FAERS Safety Report 4901262-4 (Version None)
Quarter: 2006Q1

REPORT INFORMATION
  Report Type: 
  Country: None (occurrence: None)
  Receive Date: 20060206
  Receipt Date: 20060201
  Transmission Date: 20060701
  Serious: Yes (Hospitalization)
  Sender: FDA-Public Use
  Company Number: 2006AP00543

PATIENT
  Age: 27935 Day
  Sex: Female

DRUGS (6)
  1. ARIMIDEX [Suspect]
     Indication: BREAST NEOPLASM
     Route: 048
     Dates: start: 20030715
  2. BONEFOS [Suspect]
     Dates: start: 20030315, end: 20051004
  3. MS CONTIN [Suspect]
     Indication: PAIN
     Dates: start: 20030715
  4. AUGMENTIN '125' [Suspect]
     Indication: RESPIRATORY DISORDER
     Route: 048
     Dates: start: 20050924, end: 20050929
  5. METOCLOPRAMIDE HYDROCHLORIDE [Concomitant]
     Indication: NAUSEA
     Dates: start: 20050924
  6. METOCLOPRAMIDE HYDROCHLORIDE [Concomitant]
     Indication: VOMITING
     Dates: start: 20050924

REACTIONS (2)
  - RENAL FAILURE ACUTE [None]
  - RENAL TUBULAR NECROSIS [None]
